FAERS Safety Report 4441681-6 (Version None)
Quarter: 2004Q3

REPORT INFORMATION
  Report Type: 
  Country: None (occurrence: None)
  Receive Date: 20040907
  Receipt Date: 20040826
  Transmission Date: 20050211
  Serious: Yes (Hospitalization)
  Sender: FDA-Public Use
  Company Number: JP-JNJFOC-20040900636

PATIENT
  Age: 70 Year
  Sex: Female

DRUGS (2)
  1. CRAVIT [Suspect]
     Indication: CYSTITIS
     Route: 049
     Dates: start: 20040823, end: 20040823
  2. CHOREITOU HERBAL EXTRACT [Concomitant]
     Route: 049
     Dates: start: 20040822

REACTIONS (1)
  - ERYTHEMA [None]
